FAERS Safety Report 7988760-4 (Version None)
Quarter: 2011Q4

REPORT INFORMATION
  Report Type: 
  Country: None (occurrence: None)
  Receive Date: 20111219
  Receipt Date: 20111209
  Transmission Date: 20120403
  Serious: Yes (Hospitalization)
  Sender: FDA-Public Use
  Company Number: 2005BI008887

PATIENT
  Age: 56 Year
  Sex: Female

DRUGS (5)
  1. NORVASC [Concomitant]
     Indication: HYPERTENSION
  2. HYDRALAZINE HCL [Concomitant]
     Indication: HYPERTENSION
  3. AVONEX [Suspect]
     Indication: MULTIPLE SCLEROSIS
     Route: 030
     Dates: start: 20030801
  4. AVONEX [Suspect]
     Route: 030
     Dates: start: 19960101, end: 20030801
  5. LABETALOL HCL [Concomitant]
     Indication: HYPERTENSION

REACTIONS (1)
  - OSTEOARTHRITIS [None]
